FAERS Safety Report 5408223-X (Version None)
Quarter: 2007Q3

REPORT INFORMATION
  Report Type: 
  Country: None (occurrence: None)
  Receive Date: 20070806
  Receipt Date: 20070806
  Transmission Date: 20080115
  Serious: Yes (Life-Threatening, Hospitalization)
  Sender: FDA-Public Use
  Company Number: None

PATIENT
  Age: 52 Year
  Sex: Male

DRUGS (2)
  1. WARFARIN SODIUM [Suspect]
     Indication: ATRIAL FIBRILLATION
     Dosage: 7.5MG EVERY DAY PO
     Route: 048
     Dates: start: 20051109, end: 20070702
  2. CIPROFLOXACIN [Suspect]
     Indication: DIVERTICULITIS
     Dosage: 500MG BID PO
     Route: 048
     Dates: start: 20070405, end: 20070413

REACTIONS (2)
  - GASTROINTESTINAL HAEMORRHAGE [None]
  - INTERNATIONAL NORMALISED RATIO ABNORMAL [None]
